FAERS Safety Report 12622758 (Version 2)
Quarter: 2016Q3

REPORT INFORMATION
  Report Type: Report from Study
  Country: CA (occurrence: CA)
  Receive Date: 20160804
  Receipt Date: 20160812
  Transmission Date: 20161109
  Serious: Yes (Other)
  Sender: FDA-Public Use
  Company Number: CA-JNJFOC-20160720867

PATIENT
  Age: 90 Year
  Sex: Female
  Weight: 53 kg

DRUGS (1)
  1. REMICADE [Suspect]
     Active Substance: INFLIXIMAB
     Indication: CROHN^S DISEASE
     Route: 042
     Dates: start: 20120720, end: 20160728

REACTIONS (4)
  - Off label use [Unknown]
  - Basal cell carcinoma [Unknown]
  - Product use issue [Unknown]
  - Localised infection [Unknown]

NARRATIVE: CASE EVENT DATE: 20160723
